FAERS Safety Report 5874984-9 (Version None)
Quarter: 2008Q3

REPORT INFORMATION
  Report Type: 
  Country: None (occurrence: None)
  Receive Date: 20080908
  Receipt Date: 20080908
  Transmission Date: 20090109
  Serious: Yes (Hospitalization)
  Sender: FDA-Public Use
  Company Number: None

PATIENT
  Sex: Female
  Weight: 56.6996 kg

DRUGS (1)
  1. SULFAMETHOXAZOLE [Suspect]
     Indication: URINARY TRACT INFECTION

REACTIONS (2)
  - DRUG HYPERSENSITIVITY [None]
  - URINARY TRACT INFECTION [None]
